FAERS Safety Report 14276048 (Version 1)
Quarter: 2017Q4

REPORT INFORMATION
  Report Type: Spontaneous
  Country: JP (occurrence: JP)
  Receive Date: 20171211
  Receipt Date: 20171211
  Transmission Date: 20180321
  Serious: Yes (Disabling, Congenital Anomaly, Other)
  Sender: FDA-Public Use
  Company Number: JP-OTSUKA-BJ201309522

PATIENT
  Sex: Female
  Weight: 3.04 kg

DRUGS (4)
  1. APRESOLINE HYDROCHLORIDE [Suspect]
     Active Substance: HYDRALAZINE HYDROCHLORIDE
     Indication: PRODUCT USED FOR UNKNOWN INDICATION
     Dosage: 60 MG, QD
     Route: 064
     Dates: start: 20130411, end: 20130814
  2. MAGNESIUM OXIDE. [Suspect]
     Active Substance: MAGNESIUM OXIDE
     Indication: PRODUCT USED FOR UNKNOWN INDICATION
     Dosage: 2 G, QD
     Route: 064
     Dates: start: 20130718, end: 20130801
  3. ABILIFY [Suspect]
     Active Substance: ARIPIPRAZOLE
     Indication: BIPOLAR DISORDER
     Dosage: 12 MG, QD
     Route: 064
     Dates: start: 2011, end: 20130925
  4. APRESOLINE HYDROCHLORIDE [Suspect]
     Active Substance: HYDRALAZINE HYDROCHLORIDE
     Dosage: 30 MG, QD
     Route: 064
     Dates: start: 20130815, end: 20131009

REACTIONS (5)
  - Microphthalmos [Unknown]
  - Foetal exposure during pregnancy [Unknown]
  - Corneal opacity congenital [Unknown]
  - Hypoglycaemia neonatal [Unknown]
  - Thrombocytopenia neonatal [Recovered/Resolved]
